FAERS Safety Report 9251892 (Version 1)
Quarter: 2013Q1

REPORT INFORMATION
  Report Type: Spontaneous
  Country: US (occurrence: None)
  Receive Date: 20130305
  Receipt Date: 20130305
  Transmission Date: 20140127
  Serious: Yes (Other)
  Sender: FDA-Public Use
  Company Number: 163-21880-12081975 (0)

PATIENT
  Age: 76 Year
  Sex: Female

DRUGS (10)
  1. REVLIMID [Suspect]
     Indication: PLASMA CELL MYELOMA
     Route: 048
     Dates: start: 20111216
  2. AUGMENTIN (CLAVULIN) [Concomitant]
  3. ZOMETA (ZOLEDRONIC ACID) [Concomitant]
  4. TRAMADOL HCL (TRAMADOL HYDROCHLORIDE) [Concomitant]
  5. CALCIUM 600 [Concomitant]
  6. CEFTIN (CEFUROXIME AXETIL) [Concomitant]
  7. OSCAL + D3 (CALCITE D) [Concomitant]
  8. LOPID (GEMFIBROZIL) [Concomitant]
  9. DEXAMETHASONE (DEXAMETHASONE) [Concomitant]
  10. ANTIVERT (MECLOZINE HYDROCHLORIDE) [Concomitant]

REACTIONS (3)
  - Back pain [None]
  - Pyrexia [None]
  - Drug ineffective [None]
